FAERS Safety Report 8811716 (Version 1)
Quarter: 2012Q4

REPORT INFORMATION
  Report Type: Spontaneous
  Country: US (occurrence: None)
  Receive Date: 20120925
  Receipt Date: 20120925
  Transmission Date: 20130627
  Serious: No
  Sender: FDA-Public Use
  Company Number: None

PATIENT
  Age: 54 Year
  Sex: Female
  Weight: 104.33 kg

DRUGS (5)
  1. SERTRALINE [Suspect]
  2. LASIX [Concomitant]
  3. ATENOLOL [Concomitant]
  4. LOSARTAN [Concomitant]
  5. SYNTHROID [Concomitant]

REACTIONS (4)
  - Nausea [None]
  - Dizziness [None]
  - Diarrhoea [None]
  - Drug dispensing error [None]
